FAERS Safety Report 12582276 (Version 1)
Quarter: 2016Q3

REPORT INFORMATION
  Report Type: Spontaneous
  Country: US (occurrence: US)
  Receive Date: 20160722
  Receipt Date: 20160722
  Transmission Date: 20161109
  Serious: No
  Sender: FDA-Public Use
  Company Number: US-BAYER-2016-135892

PATIENT
  Age: 29 Year
  Sex: Female

DRUGS (1)
  1. ALEVE [Suspect]
     Active Substance: NAPROXEN SODIUM
     Dosage: 2 DF, QID
     Route: 048
     Dates: start: 201605

REACTIONS (5)
  - Pain in extremity [Recovered/Resolved]
  - Product use issue [None]
  - Product use issue [None]
  - Patient-device incompatibility [Unknown]
  - Limb discomfort [Recovered/Resolved]

NARRATIVE: CASE EVENT DATE: 201605
